FAERS Safety Report 7929276-0 (Version None)
Quarter: 2011Q4

REPORT INFORMATION
  Report Type: 
  Country: None (occurrence: None)
  Receive Date: 20111121
  Receipt Date: 20111115
  Transmission Date: 20120403
  Serious: No
  Sender: FDA-Public Use
  Company Number: US-BIOGENIDEC-2010BI034534

PATIENT
  Age: 59 Year
  Sex: Female

DRUGS (1)
  1. TYSABRI [Suspect]
     Indication: MULTIPLE SCLEROSIS
     Route: 042
     Dates: start: 20090105

REACTIONS (14)
  - KNEE OPERATION [None]
  - MOBILITY DECREASED [None]
  - ARTHRALGIA [None]
  - ABASIA [None]
  - OEDEMA PERIPHERAL [None]
  - MUSCLE SPASMS [None]
  - COGNITIVE DISORDER [None]
  - FATIGUE [None]
  - MULTIPLE SCLEROSIS RELAPSE [None]
  - CALCINOSIS [None]
  - ARTHRITIS [None]
  - MENISCUS LESION [None]
  - FOOT FRACTURE [None]
  - ASTHENIA [None]
